FAERS Safety Report 8539632-8 (Version None)
Quarter: 2012Q3

REPORT INFORMATION
  Report Type: 
  Country: None (occurrence: None)
  Receive Date: 20120726
  Receipt Date: 20120723
  Transmission Date: 20120928
  Serious: Yes (Other)
  Sender: FDA-Public Use
  Company Number: PHEH2012US014153

PATIENT
  Sex: Female

DRUGS (12)
  1. CYMBALTA [Concomitant]
     Dosage: 60 MG, QD
     Route: 048
  2. GILENYA [Suspect]
     Indication: RELAPSING-REMITTING MULTIPLE SCLEROSIS
     Dosage: 0.5 MG, QD
     Route: 048
     Dates: start: 20110501
  3. RAMIPRIL [Concomitant]
     Dosage: 10 MG, QD
  4. TRILEPTAL [Concomitant]
     Indication: EPILEPSY
     Dosage: 300 MG, BID
  5. CARVEDILOL [Concomitant]
     Dosage: 12.5 MG, BID
     Route: 048
  6. BACLOFEN [Concomitant]
     Indication: MUSCLE SPASMS
     Route: 048
  7. GILENYA [Suspect]
     Dosage: 0.5 MG, QOD
     Route: 048
     Dates: end: 20120701
  8. METFORMIN HYDROCHLORIDE [Concomitant]
     Dosage: 500 MG, QD
     Route: 048
  9. MECLIZINE [Concomitant]
     Dosage: 25 MG, TID
     Route: 048
  10. DITROPAN XL [Concomitant]
     Dosage: 15 MG, QD
     Route: 048
  11. CELEBREX [Concomitant]
     Dosage: 200 MG, UNK
  12. TRAZODONE HYDROCHLORIDE [Concomitant]
     Dosage: 50 MG, QHS
     Route: 048

REACTIONS (6)
  - CHEST DISCOMFORT [None]
  - DYSPNOEA [None]
  - ELECTROCARDIOGRAM ABNORMAL [None]
  - INAPPROPRIATE SCHEDULE OF DRUG ADMINISTRATION [None]
  - CARDIOVASCULAR DISORDER [None]
  - CONDITION AGGRAVATED [None]
